FAERS Safety Report 9500560 (Version 2)
Quarter: 2013Q4

REPORT INFORMATION
  Report Type: Spontaneous
  Country: US (occurrence: None)
  Receive Date: 20130903
  Receipt Date: 20131002
  Transmission Date: 20140711
  Serious: Yes (Death, Hospitalization, Other)
  Sender: FDA-Public Use
  Company Number: ACO_38147_2013

PATIENT
  Age: 80 Year
  Sex: Female

DRUGS (4)
  1. AMPYRA [Suspect]
     Indication: PRODUCT USED FOR UNKNOWN INDICATION
     Dates: start: 201011, end: 2011
  2. FOSAMAX [Concomitant]
     Indication: PRODUCT USED FOR UNKNOWN INDICATION
  3. HYDREA [Concomitant]
  4. VICODIN [Concomitant]

REACTIONS (11)
  - Cerebrovascular accident [None]
  - Lobar pneumonia [None]
  - Lower limb fracture [None]
  - Thrombocytopenia [None]
  - Thrombocytosis [None]
  - Oedema peripheral [None]
  - Gait disturbance [None]
  - Wheelchair user [None]
  - Living in residential institution [None]
  - Multiple sclerosis [None]
  - Pain [None]
